FAERS Safety Report 6895273-X (Version None)
Quarter: 2010Q3

REPORT INFORMATION
  Report Type: 
  Country: None (occurrence: None)
  Receive Date: 20100802
  Receipt Date: 20100723
  Transmission Date: 20110219
  Serious: Yes (Other)
  Sender: FDA-Public Use
  Company Number: US-MERCK-1007USA00769

PATIENT
  Age: 68 Year
  Sex: Female

DRUGS (2)
  1. FOSAMAX [Suspect]
     Indication: OSTEOPOROSIS
     Route: 048
  2. EVISTA [Suspect]
     Indication: OSTEOPOROSIS
     Route: 065
     Dates: start: 20050101

REACTIONS (1)
  - ATRIAL FIBRILLATION [None]
